FAERS Safety Report 12077360 (Version 1)
Quarter: 2016Q1

REPORT INFORMATION
  Report Type: Spontaneous
  Country: BR (occurrence: BR)
  Receive Date: 20160215
  Receipt Date: 20160215
  Transmission Date: 20160526
  Serious: Yes (Other)
  Sender: FDA-Public Use
  Company Number: PHHY2016BR018916

PATIENT
  Sex: Female

DRUGS (2)
  1. ACETYLSALICYLIC ACID [Suspect]
     Active Substance: ASPIRIN
     Indication: ARTERIAL THROMBOSIS
     Dosage: 100 MG, QD, FOR 3 YEARS
     Route: 065
  2. METHYLDOPA. [Suspect]
     Active Substance: METHYLDOPA
     Indication: ARTERIAL THROMBOSIS
     Dosage: 750 MG, UNK
     Route: 065

REACTIONS (1)
  - Maternal exposure during pregnancy [Unknown]
